FAERS Safety Report 6160525-8 (Version None)
Quarter: 2009Q2

REPORT INFORMATION
  Report Type: 
  Country: None (occurrence: None)
  Receive Date: 20090420
  Receipt Date: 20090416
  Transmission Date: 20091009
  Serious: Yes (Hospitalization)
  Sender: FDA-Public Use
  Company Number: US-MERCK-0902USA03786

PATIENT
  Age: 61 Year
  Sex: Female

DRUGS (1)
  1. ZETIA [Suspect]
     Indication: BLOOD CHOLESTEROL
     Route: 048
     Dates: start: 20051201

REACTIONS (2)
  - MUSCLE TIGHTNESS [None]
  - MUSCULAR WEAKNESS [None]
